FAERS Safety Report 9479612 (Version 2)
Quarter: 2013Q3

REPORT INFORMATION
  Report Type: Spontaneous
  Country: TR (occurrence: TR)
  Receive Date: 20130827
  Receipt Date: 20130912
  Transmission Date: 20140515
  Serious: Yes (Other)
  Sender: FDA-Public Use
  Company Number: PHHY2013TR091606

PATIENT
  Age: 49 Year
  Sex: Female

DRUGS (3)
  1. VOLTAREN [Suspect]
     Indication: HEADACHE
     Dosage: ONCE A WEEK - TEN DAYS
     Route: 030
  2. VOLTAREN SR [Suspect]
     Indication: HEADACHE
     Dosage: UNK UKN, UNK
     Route: 048
  3. MORPHINE [Concomitant]
     Indication: PAIN
     Dosage: UNK UKN, UNK

REACTIONS (3)
  - Fracture [Unknown]
  - Fracture pain [Unknown]
  - Osteoporosis [Unknown]
